FAERS Safety Report 19679497 (Version 1)
Quarter: 2021Q3

REPORT INFORMATION
  Report Type: Spontaneous
  Country: US (occurrence: US)
  Receive Date: 20210809
  Receipt Date: 20210809
  Transmission Date: 20211014
  Serious: Yes (Death, Life-Threatening, Hospitalization, Other)
  Sender: FDA-Public Use
  Company Number: US-009507513-2107USA008923

PATIENT
  Age: 56 Year
  Sex: Female

DRUGS (16)
  1. FERROUS FUMARATE [Concomitant]
     Active Substance: FERROUS FUMARATE
     Dosage: UNK
  2. LENVATINIB MESYLATE [Suspect]
     Active Substance: LENVATINIB MESYLATE
     Indication: METASTATIC NEOPLASM
     Dosage: 18 MILLIGRAM, QD
  3. TOPROL XL [Concomitant]
     Active Substance: METOPROLOL SUCCINATE
     Dosage: 12.5 MILLIGRAM, EACH DAY IF NEEDED
  4. XANAX [Concomitant]
     Active Substance: ALPRAZOLAM
     Dosage: 1 TABLET BY MOUTH IF NEEDED
     Route: 048
  5. LEXAPRO [Concomitant]
     Active Substance: ESCITALOPRAM OXALATE
     Dosage: 1.5 DOSAGE FORM, QD (TAKES 15 MG)
     Route: 048
  6. EMLA [Concomitant]
     Active Substance: LIDOCAINE\PRILOCAINE
     Dosage: 1APLLICAITION 1 TIME
     Route: 061
  7. ZOFRAN [Concomitant]
     Active Substance: ONDANSETRON HYDROCHLORIDE
     Indication: VOMITING
  8. MAGNESIUM AMINO ACID CHELATE [Concomitant]
     Active Substance: MAGNESIUM
     Dosage: 1 TABLET, 1 TIME EACH DAY
     Route: 048
  9. DELTASON [Concomitant]
     Active Substance: PREDNISONE
     Indication: TOXICITY TO VARIOUS AGENTS
     Dosage: 50 MILLIGRAM, BID
  10. COMPAZINE [Concomitant]
     Active Substance: PROCHLORPERAZINE MALEATE
     Indication: VOMITING
  11. XILOCAINA [LIDOCAINE] [Concomitant]
     Dosage: 5 MILLILITER, Q6H
     Route: 048
  12. MAGNESIUM OXIDE. [Concomitant]
     Active Substance: MAGNESIUM OXIDE
     Dosage: 1 TABLET, 1 TIME EACH DAY
     Route: 048
  13. ZOFRAN [Concomitant]
     Active Substance: ONDANSETRON HYDROCHLORIDE
     Indication: NAUSEA
     Dosage: 8 MILLIGRAM, Q8H
     Route: 048
  14. KEYTRUDA [Suspect]
     Active Substance: PEMBROLIZUMAB
     Indication: METASTATIC NEOPLASM
     Dosage: UNK
     Dates: end: 202105
  15. ALLEGRA [Concomitant]
     Active Substance: FEXOFENADINE HYDROCHLORIDE
     Dosage: 180 MILLIGRAM, QD
     Route: 048
  16. COMPAZINE [Concomitant]
     Active Substance: PROCHLORPERAZINE MALEATE
     Indication: NAUSEA
     Dosage: 10 MILLIGRAM, Q6H

REACTIONS (18)
  - Decreased appetite [Unknown]
  - Hepatotoxicity [Unknown]
  - Hypoxia [Unknown]
  - Fatigue [Unknown]
  - Posterior reversible encephalopathy syndrome [Unknown]
  - Hyperglycaemia [Unknown]
  - Cerebrovascular accident [Unknown]
  - General physical health deterioration [Unknown]
  - Malignant neoplasm progression [Unknown]
  - Confusional state [Unknown]
  - Mental status changes [Unknown]
  - Liver disorder [Unknown]
  - Embolic stroke [Fatal]
  - Liver function test abnormal [Unknown]
  - Hyperbilirubinaemia [Unknown]
  - Aphasia [Unknown]
  - Leukocytosis [Unknown]
  - Speech disorder [Unknown]

NARRATIVE: CASE EVENT DATE: 202106
